FAERS Safety Report 22350139 (Version 1)
Quarter: 2023Q2

REPORT INFORMATION
  Report Type: Spontaneous
  Country: US (occurrence: None)
  Receive Date: 20230519
  Receipt Date: 20230519
  Transmission Date: 20230722
  Serious: Yes (unspecified)
  Sender: FDA-Public Use
  Company Number: None

PATIENT
  Age: 23 Year
  Sex: Male
  Weight: 189.9 kg

DRUGS (3)
  1. OZEMPIC [Suspect]
     Active Substance: SEMAGLUTIDE
     Indication: Glucose tolerance impaired
     Dosage: OTHER QUANTITY : 1 INJECTION(S);?FREQUENCY : WEEKLY;?
     Route: 058
     Dates: start: 20230513, end: 20230513
  2. MELOXICAM [Concomitant]
     Active Substance: MELOXICAM
  3. VITAMIN D3 [Concomitant]
     Active Substance: CHOLECALCIFEROL

REACTIONS (17)
  - Loss of personal independence in daily activities [None]
  - Fatigue [None]
  - Impaired work ability [None]
  - Impaired driving ability [None]
  - Unhealthy lifestyle [None]
  - Disturbance in attention [None]
  - Depression [None]
  - Anxiety [None]
  - Emotional distress [None]
  - Feeling of despair [None]
  - Suicidal ideation [None]
  - Vision blurred [None]
  - Eye pain [None]
  - Photophobia [None]
  - Frustration tolerance decreased [None]
  - Quality of life decreased [None]
  - Therapy cessation [None]

NARRATIVE: CASE EVENT DATE: 20230513
